FAERS Safety Report 9029402 (Version 1)
Quarter: 2013Q1

REPORT INFORMATION
  Report Type: Other
  Country: JP (occurrence: JP)
  Receive Date: 20130125
  Receipt Date: 20130125
  Transmission Date: 20140127
  Serious: Yes (Hospitalization)
  Sender: FDA-Public Use
  Company Number: JP-BRISTOL-MYERS SQUIBB COMPANY-17288564

PATIENT
  Age: 59 Year
  Sex: Male

DRUGS (2)
  1. CISPLATIN [Suspect]
     Indication: NASOPHARYNGEAL CANCER
     Dosage: ON DAYS 6 AND 7
  2. 5-FLUOROURACIL [Suspect]
     Indication: NASOPHARYNGEAL CANCER
     Dosage: DAYS 1-5 DAYS

REACTIONS (1)
  - Dropped head syndrome [Unknown]
